FAERS Safety Report 22155428 (Version 5)
Quarter: 2023Q2

REPORT INFORMATION
  Report Type: Report from Study
  Country: US (occurrence: US)
  Receive Date: 20230330
  Receipt Date: 20230518
  Transmission Date: 20230721
  Serious: Yes (Hospitalization, Other)
  Sender: FDA-Public Use
  Company Number: US-JAZZ-2017-US-010819

PATIENT
  Sex: Male

DRUGS (5)
  1. XYREM [Suspect]
     Active Substance: SODIUM OXYBATE
     Indication: Narcolepsy
     Dosage: 2.25 G, BID
     Route: 048
     Dates: start: 201506, end: 201508
  2. XYREM [Suspect]
     Active Substance: SODIUM OXYBATE
     Indication: Cataplexy
     Dosage: DOSE ADJUSTMENTS
     Route: 048
     Dates: start: 201508, end: 201605
  3. XYREM [Suspect]
     Active Substance: SODIUM OXYBATE
     Indication: Somnolence
     Dosage: 4.5 G, BID
     Route: 048
     Dates: start: 201605
  4. QUETIAPINE [Suspect]
     Active Substance: QUETIAPINE
     Indication: Product used for unknown indication
     Dosage: UNK
  5. IRBESARTAN [Concomitant]
     Active Substance: IRBESARTAN
     Dosage: UNK
     Dates: start: 20180424

REACTIONS (14)
  - Alcoholic pancreatitis [Unknown]
  - Hepatitis alcoholic [Unknown]
  - Alcohol abuse [Unknown]
  - Anxiety [Unknown]
  - Hyperlipidaemia [Unknown]
  - Depression [Recovering/Resolving]
  - Weight increased [Unknown]
  - Drug hypersensitivity [Unknown]
  - Hypertension [Unknown]
  - Substance use [Unknown]
  - Hunger [Unknown]
  - Somnolence [Unknown]
  - Contraindicated product administered [Unknown]
  - Product administration interrupted [Unknown]
